FAERS Safety Report 16827909 (Version 2)
Quarter: 2019Q3

REPORT INFORMATION
  Report Type: Spontaneous
  Country: US (occurrence: US)
  Receive Date: 20190919
  Receipt Date: 20190925
  Transmission Date: 20191005
  Serious: No
  Sender: FDA-Public Use
  Company Number: US-PFIZER INC-2019405665

PATIENT
  Age: 88 Year
  Sex: Male

DRUGS (1)
  1. VYNDAQEL [Suspect]
     Active Substance: TAFAMIDIS MEGLUMINE
     Indication: AMYLOIDOSIS
     Dosage: 80 MG, 1X/DAY (20 MG; BY MOUTH, 4 OF THEM ONCE A DAY)
     Route: 048

REACTIONS (3)
  - Off label use [Unknown]
  - Diarrhoea [Recovering/Resolving]
  - Product use in unapproved indication [Unknown]
